FAERS Safety Report 8380585-3 (Version None)
Quarter: 2012Q2

REPORT INFORMATION
  Report Type: 
  Country: None (occurrence: None)
  Receive Date: 20120522
  Receipt Date: 20120419
  Transmission Date: 20120825
  Serious: Yes (Hospitalization)
  Sender: FDA-Public Use
  Company Number: 2012PROUSA01301

PATIENT
  Age: 91 Year
  Sex: Male
  Weight: 68 kg

DRUGS (16)
  1. TOPROL-XL [Concomitant]
  2. BENADRYL [Concomitant]
  3. NITROBID /00003201/ (GLYCERYL TRINITRATE) [Concomitant]
  4. PROVENGE [Suspect]
     Indication: PROSTATE CANCER
     Dosage: 250 ML, SINGLE
     Dates: start: 20111216, end: 20111216
  5. PROVENGE [Suspect]
     Dosage: 250 ML, SINGLE, INTRAVENOUS
     Route: 042
     Dates: start: 20120106, end: 20120106
  6. PROVENGE [Suspect]
     Dosage: 250 ML, SINGLE, INTRAVENOUS
     Route: 042
     Dates: start: 20120119, end: 20120119
  7. MIRALAX /00754501/ (MACROGOL) [Concomitant]
  8. XALATAN [Concomitant]
  9. TYLENOL /00003201/ (PARACETAMOL) [Concomitant]
  10. ASPIRIN [Concomitant]
  11. LOPRESSOR [Concomitant]
  12. BENICAR [Concomitant]
  13. PREDNISONE TAB [Concomitant]
  14. VIT D (ERGOCALCIFEROL) [Concomitant]
  15. CLONIDINE [Concomitant]
  16. ZOCOR [Concomitant]

REACTIONS (9)
  - PETECHIAE [None]
  - CEREBRAL INFARCTION [None]
  - SUBARACHNOID HAEMORRHAGE [None]
  - CAROTID ARTERY OCCLUSION [None]
  - URINARY RETENTION [None]
  - CORONARY ARTERY STENOSIS [None]
  - DYSPHAGIA [None]
  - HYPOKALAEMIA [None]
  - CEREBROVASCULAR ACCIDENT [None]
